FAERS Safety Report 15436796 (Version 1)
Quarter: 2018Q3

REPORT INFORMATION
  Report Type: Spontaneous
  Country: US (occurrence: US)
  Receive Date: 20180927
  Receipt Date: 20180927
  Transmission Date: 20181010
  Serious: No
  Sender: FDA-Public Use
  Company Number: US-MYLANLABS-2018M1068090

PATIENT
  Sex: Female
  Weight: 55 kg

DRUGS (1)
  1. ESTRADIOL. [Suspect]
     Active Substance: ESTRADIOL
     Indication: HYSTERECTOMY
     Dosage: UNK
     Route: 062

REACTIONS (2)
  - Cystitis [Recovered/Resolved]
  - Drug administration error [Recovered/Resolved]
